FAERS Safety Report 9123729 (Version 1)
Quarter: 2013Q1

REPORT INFORMATION
  Report Type: Spontaneous
  Country: US (occurrence: US)
  Receive Date: 20130227
  Receipt Date: 20130227
  Transmission Date: 20140127
  Serious: Yes (Other)
  Sender: FDA-Public Use
  Company Number: US-ROCHE-1195159

PATIENT
  Sex: 0

DRUGS (1)
  1. RITUXAN [Suspect]
     Indication: PRODUCT USED FOR UNKNOWN INDICATION
     Route: 065

REACTIONS (3)
  - Pneumonitis [Unknown]
  - Pulmonary fibrosis [Unknown]
  - Lung infiltration [Unknown]
